FAERS Safety Report 4566986-X (Version None)
Quarter: 2005Q1

REPORT INFORMATION
  Report Type: 
  Country: None (occurrence: None)
  Receive Date: 20050201
  Receipt Date: 20040212
  Transmission Date: 20050727
  Serious: Yes (Other)
  Sender: FDA-Public Use
  Company Number: US-BRISTOL-MYERS SQUIBB COMPANY-12510913

PATIENT
  Age: 44 Year

DRUGS (10)
  1. STADOL [Suspect]
     Route: 045
     Dates: start: 19950223
  2. CARISOPRODOL [Concomitant]
  3. AMITRIPTYLINE [Concomitant]
  4. PROMETHAZINE [Concomitant]
  5. LORTAB [Concomitant]
  6. ALLOPURINOL [Concomitant]
  7. ULTRAM [Concomitant]
  8. PROPOXYPHENE NAPSYLATE [Concomitant]
  9. PHENYLPROPANOLAMINE + GUAIFENESIN [Concomitant]
  10. FUROSEMIDE [Concomitant]

REACTIONS (2)
  - DEPENDENCE [None]
  - DRUG WITHDRAWAL SYNDROME [None]
